FAERS Safety Report 6212927-9 (Version None)
Quarter: 2009Q2

REPORT INFORMATION
  Report Type: 
  Country: None (occurrence: None)
  Receive Date: 20090601
  Receipt Date: 20090520
  Transmission Date: 20091009
  Serious: Yes (Other)
  Sender: FDA-Public Use
  Company Number: ALA_00298_2009

PATIENT
  Sex: Female

DRUGS (4)
  1. TRILYTE [Suspect]
     Indication: COLONOSCOPY
     Dosage: 7 GLASSES OF SOLUTION ORAL
     Route: 048
     Dates: start: 20090517, end: 20090517
  2. DIOVAN HCT [Concomitant]
  3. PREVACID [Concomitant]
  4. ESTRATEST H.S. [Concomitant]

REACTIONS (7)
  - BLOOD PRESSURE INCREASED [None]
  - CHILLS [None]
  - HEADACHE [None]
  - MALAISE [None]
  - NASAL CONGESTION [None]
  - NAUSEA [None]
  - VOMITING [None]
